FAERS Safety Report 20962014 (Version 1)
Quarter: 2022Q2

REPORT INFORMATION
  Report Type: Spontaneous
  Country: US (occurrence: None)
  Receive Date: 20220615
  Receipt Date: 20220615
  Transmission Date: 20220720
  Serious: Yes (Other)
  Sender: FDA-Public Use
  Company Number: US-MDD US Operations-MDD202111-002404

PATIENT
  Age: 73 Year
  Sex: Male

DRUGS (6)
  1. APOKYN [Suspect]
     Active Substance: APOMORPHINE HYDROCHLORIDE
     Indication: Parkinson^s disease
     Route: 058
  2. APOKYN [Suspect]
     Active Substance: APOMORPHINE HYDROCHLORIDE
     Dosage: NOT PROVIDED
  3. APOKYN [Suspect]
     Active Substance: APOMORPHINE HYDROCHLORIDE
     Dates: start: 20190516
  4. GABAPENTIN [Suspect]
     Active Substance: GABAPENTIN
     Indication: Product used for unknown indication
     Dosage: NOT PROVIDED
     Dates: start: 2022
  5. LEVODOPA [Concomitant]
     Active Substance: LEVODOPA
     Dosage: 50/200
  6. AMANTADINE [Concomitant]
     Active Substance: AMANTADINE
     Dosage: 100 MG

REACTIONS (7)
  - Fall [Unknown]
  - Myalgia [Unknown]
  - Freezing phenomenon [Unknown]
  - Nervous system disorder [Unknown]
  - Skin abrasion [Unknown]
  - Contusion [Unknown]
  - Dyskinesia [Unknown]

NARRATIVE: CASE EVENT DATE: 20220101
